FAERS Safety Report 18744386 (Version 5)
Quarter: 2024Q1

REPORT INFORMATION
  Report Type: Spontaneous
  Country: US (occurrence: None)
  Receive Date: 20210114
  Receipt Date: 20240319
  Transmission Date: 20240409
  Serious: Yes (Hospitalization, Other)
  Sender: FDA-Public Use
  Company Number: 2021A002216

PATIENT
  Age: 20240 Day
  Sex: Male
  Weight: 158.8 kg

DRUGS (30)
  1. FARXIGA [Suspect]
     Active Substance: DAPAGLIFLOZIN PROPANEDIOL
     Indication: Type 2 diabetes mellitus
     Route: 048
     Dates: start: 20180221
  2. FARXIGA [Suspect]
     Active Substance: DAPAGLIFLOZIN PROPANEDIOL
     Indication: Weight decreased
     Route: 048
     Dates: start: 20180221
  3. FARXIGA [Suspect]
     Active Substance: DAPAGLIFLOZIN PROPANEDIOL
     Indication: Blood pressure decreased
     Route: 048
     Dates: start: 20180221
  4. FARXIGA [Suspect]
     Active Substance: DAPAGLIFLOZIN PROPANEDIOL
     Indication: Type 2 diabetes mellitus
     Route: 048
  5. FARXIGA [Suspect]
     Active Substance: DAPAGLIFLOZIN PROPANEDIOL
     Indication: Weight decreased
     Route: 048
  6. FARXIGA [Suspect]
     Active Substance: DAPAGLIFLOZIN PROPANEDIOL
     Indication: Blood pressure decreased
     Route: 048
  7. GABAPENTIN [Concomitant]
     Active Substance: GABAPENTIN
     Indication: Seizure
  8. LISINOPRIL [Concomitant]
     Active Substance: LISINOPRIL
     Indication: Hypertension
  9. SIMVASTATIN [Concomitant]
     Active Substance: SIMVASTATIN
  10. METFORMIN [Concomitant]
     Active Substance: METFORMIN HYDROCHLORIDE
  11. HYDROCHLOROTHIAZIDE [Concomitant]
     Active Substance: HYDROCHLOROTHIAZIDE
  12. FLUTICASONE [Concomitant]
     Active Substance: FLUTICASONE
  13. ATORVASTATIN CALCIUM [Concomitant]
     Active Substance: ATORVASTATIN CALCIUM
  14. TAMSULOSIN [Concomitant]
     Active Substance: TAMSULOSIN
  15. OXYCODONE [Concomitant]
     Active Substance: OXYCODONE\OXYCODONE HYDROCHLORIDE
  16. AMOXICILLIN [Concomitant]
     Active Substance: AMOXICILLIN
  17. JARDIANCE [Concomitant]
     Active Substance: EMPAGLIFLOZIN
  18. AMLODIPINE BESYLATE [Concomitant]
     Active Substance: AMLODIPINE BESYLATE
  19. PREDNISONE [Concomitant]
     Active Substance: PREDNISONE
  20. ACETAMINOPHEN\HYDROCODONE BITARTRATE [Concomitant]
     Active Substance: ACETAMINOPHEN\HYDROCODONE BITARTRATE
  21. CYCLOBENZAPRINE [Concomitant]
     Active Substance: CYCLOBENZAPRINE
  22. ASPIRIN [Concomitant]
     Active Substance: ASPIRIN
  23. BUTALBITAL [Concomitant]
     Active Substance: BUTALBITAL
  24. GENTAMICIN [Concomitant]
     Active Substance: GENTAMICIN
  25. VITAMIN D [Concomitant]
     Active Substance: VITAMIN D NOS
  26. IBUPROFEN [Concomitant]
     Active Substance: IBUPROFEN
  27. ACTOS [Concomitant]
     Active Substance: PIOGLITAZONE HYDROCHLORIDE
  28. METFORMIIN HCL [Concomitant]
  29. AMLODIPINE [Concomitant]
     Active Substance: AMLODIPINE BESYLATE
     Indication: Hypertension
  30. TRADJENTA [Concomitant]
     Active Substance: LINAGLIPTIN

REACTIONS (10)
  - Fournier^s gangrene [Unknown]
  - Acute kidney injury [Unknown]
  - Sepsis [Unknown]
  - Scrotal abscess [Unknown]
  - Renal tubular necrosis [Unknown]
  - Renal failure [Unknown]
  - Chronic kidney disease [Unknown]
  - Wound dehiscence [Unknown]
  - Hypotension [Unknown]
  - Scrotal pain [Unknown]

NARRATIVE: CASE EVENT DATE: 20181211
